FAERS Safety Report 4360145-1 (Version None)
Quarter: 2004Q2

REPORT INFORMATION
  Report Type: 
  Country: None (occurrence: None)
  Receive Date: 20040513
  Receipt Date: 20040429
  Transmission Date: 20050107
  Serious: Yes (Hospitalization, Disabling)
  Sender: FDA-Public Use
  Company Number: 2004SE02246

PATIENT
  Age: 50 Year
  Sex: Female

DRUGS (13)
  1. NEXIUM [Suspect]
     Indication: GASTROINTESTINAL DISORDER
     Dosage: 40 MG DAILY PO
     Route: 048
     Dates: start: 20040326, end: 20040402
  2. NEXIUM [Suspect]
     Indication: GASTROINTESTINAL DISORDER
     Dosage: 40 MG DAILY PO
     Route: 048
     Dates: start: 20040403, end: 20040419
  3. MAALOX [Concomitant]
  4. METFORMIN HCL [Concomitant]
  5. GLYCOMIN [Concomitant]
  6. COVERSYL [Concomitant]
  7. INDAPAMIDE [Concomitant]
  8. PREMARIN [Concomitant]
  9. RENNIES/OLD FORM/ [Concomitant]
  10. GAVISCON [Concomitant]
  11. PANADO [Concomitant]
  12. MOXYPEN [Concomitant]
  13. SOLPHYLLEX [Concomitant]

REACTIONS (11)
  - ABDOMINAL PAIN UPPER [None]
  - ADENOMYOSIS [None]
  - ANOREXIA [None]
  - BILE DUCT STENOSIS [None]
  - BLOOD GLUCOSE INCREASED [None]
  - HEPATIC STEATOSIS [None]
  - HEPATITIS [None]
  - HEPATOMEGALY [None]
  - JAUNDICE [None]
  - NAUSEA [None]
  - WEIGHT DECREASED [None]
